FAERS Safety Report 4988387-2 (Version None)
Quarter: 2006Q2

REPORT INFORMATION
  Report Type: 
  Country: None (occurrence: None)
  Receive Date: 20060502
  Receipt Date: 20060421
  Transmission Date: 20061013
  Serious: Yes (Other)
  Sender: FDA-Public Use
  Company Number: AU-AVENTIS-200614500GDDC

PATIENT
  Age: 65 Year
  Sex: Male

DRUGS (2)
  1. FLUOROURACIL [Suspect]
     Indication: RECTAL CANCER
     Dosage: DOSE: NOT PROVIDED
     Route: 042
  2. FOLINIC ACID [Concomitant]
     Indication: RECTAL CANCER
     Dosage: DOSE: NOT PROVIDED
     Route: 042

REACTIONS (2)
  - CELLULITIS [None]
  - PYOGENIC GRANULOMA [None]
